FAERS Safety Report 5212818-6 (Version None)
Quarter: 2007Q1

REPORT INFORMATION
  Report Type: 
  Country: None (occurrence: None)
  Receive Date: 20070119
  Receipt Date: 20070110
  Transmission Date: 20070707
  Serious: Yes (Other)
  Sender: FDA-Public Use
  Company Number: DK-JNJFOC-20061000962

PATIENT
  Age: 37 Year
  Sex: Female
  Weight: 56.8 kg

DRUGS (7)
  1. REMICADE [Suspect]
     Route: 042
  2. REMICADE [Suspect]
     Route: 042
  3. REMICADE [Suspect]
     Route: 042
  4. REMICADE [Suspect]
     Indication: ANKYLOSING SPONDYLITIS
     Dosage: 200MG IN 250ML SODIUM CHLORIDE
     Route: 042
  5. METHOTREXATE [Concomitant]
     Route: 065
  6. FOLINIC ACID [Concomitant]
     Route: 065
  7. DICLOFENAC SODIUM [Concomitant]
     Route: 065

REACTIONS (4)
  - DYSPNOEA [None]
  - ERYTHEMA [None]
  - INFUSION RELATED REACTION [None]
  - STRIDOR [None]
